FAERS Safety Report 21763123 (Version 2)
Quarter: 2022Q4

REPORT INFORMATION
  Report Type: Report from Study
  Country: PL (occurrence: PL)
  Receive Date: 20221221
  Receipt Date: 20221229
  Transmission Date: 20230113
  Serious: Yes (Hospitalization)
  Sender: FDA-Public Use
  Company Number: PL-PFIZER INC-PV202200125022

PATIENT
  Age: 16 Year
  Sex: Male
  Weight: 124 kg

DRUGS (10)
  1. ABROCITINIB [Suspect]
     Active Substance: ABROCITINIB
     Indication: Dermatitis atopic
     Dosage: 200 MG, 1X/DAY
     Route: 048
     Dates: start: 20200109, end: 20221212
  2. CLATRA [Concomitant]
     Indication: Rhinitis allergic
     Dosage: 20 UG, 1X/DAY
     Route: 048
     Dates: start: 20221207
  3. RUPAFIN [Concomitant]
     Active Substance: RUPATADINE FUMARATE
     Dosage: 10 MG, Q24H
     Route: 048
     Dates: start: 201809
  4. DYMISTA [Concomitant]
     Active Substance: AZELASTINE HYDROCHLORIDE\FLUTICASONE PROPIONATE
     Dosage: 50 MG, AS NEEDED
     Route: 048
     Dates: start: 201903
  5. VITAMIN D3 [Concomitant]
     Active Substance: CHOLECALCIFEROL
     Dosage: 1000 IU, Q24H
     Route: 048
     Dates: start: 20190626
  6. ATARAX [Concomitant]
     Active Substance: HYDROXYZINE HYDROCHLORIDE
     Dosage: 10+25MG, TWICE DAILY
     Route: 048
     Dates: start: 20190717
  7. MOMETASONE FUROATE [Concomitant]
     Active Substance: MOMETASONE FUROATE
     Indication: Dermatitis atopic
     Dosage: 0.1 %, AS NEEDED
     Route: 061
     Dates: start: 20191015
  8. HYDROCORTISONE [Concomitant]
     Active Substance: HYDROCORTISONE
     Indication: Dermatitis atopic
     Dosage: 1 %, AS NEEDED
     Route: 061
     Dates: start: 20191015
  9. MELATONIN [Concomitant]
     Active Substance: MELATONIN
     Indication: Dermatitis atopic
     Dosage: 3 MG, Q24H
     Route: 048
     Dates: start: 201808
  10. EUCERINUM [Concomitant]
     Indication: Dermatitis atopic
     Dosage: 2X/DAY, 120
     Route: 061
     Dates: start: 20191015

REACTIONS (1)
  - Psoriasis [Recovering/Resolving]

NARRATIVE: CASE EVENT DATE: 20221122
